FAERS Safety Report 5638607-6 (Version None)
Quarter: 2008Q1

REPORT INFORMATION
  Report Type: 
  Country: None (occurrence: None)
  Receive Date: 20080226
  Receipt Date: 20070702
  Transmission Date: 20080703
  Serious: No
  Sender: FDA-Public Use
  Company Number: A0661323A

PATIENT
  Age: 28 Year
  Sex: Female

DRUGS (6)
  1. IMITREX [Suspect]
     Indication: MIGRAINE
     Dosage: 6MG MONTHLY
     Route: 058
  2. IMITREX [Suspect]
     Dosage: 100MG UNKNOWN
     Route: 048
  3. METFORMIN HCL [Concomitant]
  4. SPIRONOLACTONE [Concomitant]
  5. MICROGESTIN 1.5/30 [Concomitant]
  6. BIRTH CONTROL [Concomitant]

REACTIONS (2)
  - DRUG INEFFECTIVE [None]
  - PHARMACEUTICAL PRODUCT COMPLAINT [None]
